FAERS Safety Report 15005566 (Version 1)
Quarter: 2018Q2

REPORT INFORMATION
  Report Type: Spontaneous
  Country: IR (occurrence: IR)
  Receive Date: 20180613
  Receipt Date: 20180613
  Transmission Date: 20180711
  Serious: Yes (Other)
  Sender: FDA-Public Use
  Company Number: IR-BAUSCH-BL-2018-016448

PATIENT
  Age: 16 Year
  Sex: Female

DRUGS (1)
  1. GENTAMICIN. [Suspect]
     Active Substance: GENTAMICIN
     Indication: PRODUCT USED FOR UNKNOWN INDICATION
     Route: 065

REACTIONS (6)
  - Quality of life decreased [Recovered/Resolved]
  - Vestibular disorder [Recovered/Resolved]
  - Ototoxicity [Recovered/Resolved]
  - Fall [Recovered/Resolved]
  - Oscillopsia [Recovered/Resolved]
  - Balance disorder [Recovered/Resolved]
